FAERS Safety Report 5325958-8 (Version None)
Quarter: 2007Q2

REPORT INFORMATION
  Report Type: 
  Country: None (occurrence: None)
  Receive Date: 20070516
  Receipt Date: 20070416
  Transmission Date: 20071010
  Serious: No
  Sender: FDA-Public Use
  Company Number: A0647442A

PATIENT
  Age: 22 Year
  Sex: Male

DRUGS (5)
  1. EPZICOM [Suspect]
     Indication: HIV INFECTION
     Dosage: 1TAB PER DAY
     Route: 048
     Dates: start: 20070413
  2. TOPROL-XL [Concomitant]
  3. LEVAQUIN [Concomitant]
  4. CEFTRIAXONE [Concomitant]
  5. SUSTIVA [Concomitant]

REACTIONS (1)
  - BLOOD CREATININE INCREASED [None]
